FAERS Safety Report 7218807-4 (Version None)
Quarter: 2011Q1

REPORT INFORMATION
  Report Type: 
  Country: None (occurrence: None)
  Receive Date: 20110110
  Receipt Date: 20100615
  Transmission Date: 20110831
  Serious: No
  Sender: FDA-Public Use
  Company Number: US-ABBOTT-10P-163-0652244-00

PATIENT
  Sex: Male

DRUGS (3)
  1. DARVOCET [Suspect]
     Indication: PAIN
  2. HYDROCODONE BITARTRATE [Suspect]
     Indication: PAIN
  3. VIAGRA [Concomitant]
     Indication: PRODUCT USED FOR UNKNOWN INDICATION

REACTIONS (2)
  - PAIN [None]
  - DRUG INEFFECTIVE [None]
